FAERS Safety Report 4955296-4 (Version None)
Quarter: 2006Q1

REPORT INFORMATION
  Report Type: 
  Country: None (occurrence: None)
  Receive Date: 20060328
  Receipt Date: 20060322
  Transmission Date: 20060701
  Serious: Yes (Hospitalization, Other)
  Sender: FDA-Public Use
  Company Number: ZA-BRISTOL-MYERS SQUIBB COMPANY-13322490

PATIENT
  Age: 47 Year

DRUGS (5)
  1. STAVUDINE [Suspect]
     Indication: HIV INFECTION
     Route: 048
     Dates: start: 20050106, end: 20060313
  2. STOCRIN [Suspect]
     Indication: HIV INFECTION
     Route: 048
     Dates: start: 20050106, end: 20060313
  3. LAMIVUDINE [Suspect]
     Indication: HIV INFECTION
     Route: 048
     Dates: start: 20050106, end: 20060313
  4. VITAMIN [Concomitant]
     Dates: start: 20000224
  5. BACTRIM [Concomitant]
     Dates: start: 20000224

REACTIONS (4)
  - ABDOMINAL DISTENSION [None]
  - ANION GAP INCREASED [None]
  - BLOOD LACTIC ACID INCREASED [None]
  - WEIGHT DECREASED [None]
